FAERS Safety Report 5319615-1 (Version None)
Quarter: 2007Q2

REPORT INFORMATION
  Report Type: 
  Country: None (occurrence: None)
  Receive Date: 20070503
  Receipt Date: 20070423
  Transmission Date: 20071010
  Serious: Yes (Hospitalization, Other)
  Sender: FDA-Public Use
  Company Number: 2007RR-07010

PATIENT
  Age: 70 Year
  Sex: Male

DRUGS (12)
  1. ENALAPRIL MALEATE [Suspect]
  2. DIGOXIN [Concomitant]
  3. ACENOCOUMAROL [Concomitant]
  4. THEOPHYLLINE [Concomitant]
  5. AMILORIDE (AMILORIDE) [Concomitant]
  6. FURSEMIDE (FUROSEMIDE) [Concomitant]
  7. ISOSORBIDE MONONITRATE (ISOSORBIDE) [Concomitant]
  8. PRAVASTATIN [Concomitant]
  9. LACIDIPINE [Concomitant]
  10. HOSTACYCLINE [Concomitant]
  11. PREDNISOLONE [Concomitant]
  12. BETAMETHASONE CREAM [Concomitant]

REACTIONS (5)
  - CONDITION AGGRAVATED [None]
  - ONYCHOLYSIS [None]
  - PEMPHIGUS [None]
  - PSORIASIS [None]
  - SKIN HYPERPIGMENTATION [None]
